FAERS Safety Report 4763560-7 (Version None)
Quarter: 2005Q3

REPORT INFORMATION
  Report Type: 
  Country: None (occurrence: None)
  Receive Date: 20050908
  Receipt Date: 20050829
  Transmission Date: 20060218
  Serious: Yes (Other)
  Sender: FDA-Public Use
  Company Number: US-GLAXOSMITHKLINE-A0572150A

PATIENT
  Age: 39 Year
  Sex: Male
  Weight: 68 kg

DRUGS (1)
  1. TUMS E-X TABLETS [Suspect]
     Route: 048
     Dates: start: 20050701, end: 20050801

REACTIONS (2)
  - ABDOMINAL PAIN [None]
  - NEPHROLITHIASIS [None]
